FAERS Safety Report 4337047-X (Version None)
Quarter: 2004Q1

REPORT INFORMATION
  Report Type: 
  Country: None (occurrence: None)
  Receive Date: 20040329
  Receipt Date: 20040115
  Transmission Date: 20041129
  Serious: No
  Sender: FDA-Public Use
  Company Number: USA040156765

PATIENT
  Age: 24 Year
  Sex: Female
  Weight: 64 kg

DRUGS (7)
  1. STRATTERA [Suspect]
     Indication: ATTENTION DEFICIT/HYPERACTIVITY DISORDER
     Dosage: 40 MG/DAY
     Dates: start: 20040108
  2. REMERON [Concomitant]
  3. SEROQUEL [Concomitant]
  4. RESTORIL [Concomitant]
  5. ABILIFY [Concomitant]
  6. COGENTIN [Concomitant]
  7. LAMICTAL [Concomitant]

REACTIONS (6)
  - DIZZINESS [None]
  - DRY MOUTH [None]
  - DYSURIA [None]
  - HEADACHE [None]
  - INSOMNIA [None]
  - MEMORY IMPAIRMENT [None]
